FAERS Safety Report 4811745-3 (Version None)
Quarter: 2005Q4

REPORT INFORMATION
  Report Type: 
  Country: None (occurrence: None)
  Receive Date: 20051025
  Receipt Date: 20051011
  Transmission Date: 20060501
  Serious: Yes (Hospitalization)
  Sender: FDA-Public Use
  Company Number: 200403364

PATIENT
  Age: 39 Year
  Sex: Female
  Weight: 53.978 kg

DRUGS (4)
  1. BOTOX COSMETIC [Suspect]
     Indication: SKIN WRINKLING
     Dosage: 25 UNITS PRN IM
     Route: 030
     Dates: start: 20040329
  2. BOTOX COSMETIC [Suspect]
     Indication: SKIN WRINKLING
     Dosage: 15 UNITS PRN IM
     Route: 030
     Dates: start: 20040420
  3. CELEXA [Concomitant]
  4. ZOLOFT [Concomitant]

REACTIONS (31)
  - ABASIA [None]
  - ABNORMAL BEHAVIOUR [None]
  - ACTIVITIES OF DAILY LIVING IMPAIRED [None]
  - ADVERSE DRUG REACTION [None]
  - ASTHENIA [None]
  - ASTHENOPIA [None]
  - COUGH [None]
  - DISTURBANCE IN SOCIAL BEHAVIOUR [None]
  - DIZZINESS [None]
  - EYE OEDEMA [None]
  - FEELING ABNORMAL [None]
  - FIBRIN D DIMER INCREASED [None]
  - HEADACHE [None]
  - HYPERREFLEXIA [None]
  - HYPERVENTILATION [None]
  - HYPOAESTHESIA [None]
  - INJECTION SITE SWELLING [None]
  - LACUNAR INFARCTION [None]
  - MALAISE [None]
  - MULTIPLE SCLEROSIS [None]
  - MUSCULAR WEAKNESS [None]
  - PAIN [None]
  - PANIC DISORDER [None]
  - PARAESTHESIA [None]
  - PHAEOCHROMOCYTOMA [None]
  - PNEUMONIA [None]
  - PYREXIA [None]
  - SINUSITIS [None]
  - THROMBOSIS [None]
  - UPPER RESPIRATORY TRACT INFECTION [None]
  - VIRAL INFECTION [None]
